FAERS Safety Report 5134502-X (Version None)
Quarter: 2006Q4

REPORT INFORMATION
  Report Type: 
  Country: None (occurrence: None)
  Receive Date: 20061025
  Receipt Date: 19870419
  Transmission Date: 20070319
  Serious: Yes (Life-Threatening, Hospitalization)
  Sender: FDA-Public Use
  Company Number: US-BAYER-1198710561

PATIENT
  Age: 34 Year
  Sex: Female

DRUGS (4)
  1. ADALAT [Suspect]
     Indication: SUICIDE ATTEMPT
     Route: 048
  2. ALCOHOL [Suspect]
     Indication: SUICIDE ATTEMPT
     Route: 048
  3. LANOXIN [Concomitant]
     Indication: DRUG USE FOR UNKNOWN INDICATION
     Route: 048
  4. NIFEDIPINE [Concomitant]
     Indication: DRUG USE FOR UNKNOWN INDICATION
     Dosage: TOTAL DAILY DOSE: 30 MG  UNIT DOSE: 10 MG
     Route: 065

REACTIONS (5)
  - ACIDOSIS [None]
  - ATRIOVENTRICULAR BLOCK [None]
  - DRUG LEVEL ABOVE THERAPEUTIC [None]
  - HYPERGLYCAEMIA [None]
  - HYPOTENSION [None]
